FAERS Safety Report 18517092 (Version 3)
Quarter: 2021Q1

REPORT INFORMATION
  Report Type: Spontaneous
  Country: US (occurrence: US)
  Receive Date: 20201118
  Receipt Date: 20210312
  Transmission Date: 20210419
  Serious: No
  Sender: FDA-Public Use
  Company Number: US-TAKEDA-2020TUS047018

PATIENT
  Sex: Female
  Weight: 77 kg

DRUGS (17)
  1. SINGULAIR [Concomitant]
     Active Substance: MONTELUKAST SODIUM
  2. HYQVIA [Suspect]
     Active Substance: HUMAN IMMUNOGLOBULIN G\HYALURONIDASE RECOMBINANT HUMAN
     Indication: IMMUNOGLOBULINS INCREASED
     Dosage: 37.5 GRAM, Q4WEEKS
     Route: 065
     Dates: start: 20201022
  3. HYQVIA [Suspect]
     Active Substance: HUMAN IMMUNOGLOBULIN G\HYALURONIDASE RECOMBINANT HUMAN
     Indication: PRODUCT USED FOR UNKNOWN INDICATION
     Dosage: 37.5 GRAM, Q4WEEKS
     Route: 058
     Dates: start: 20201022
  4. EPINEPHRINE. [Concomitant]
     Active Substance: EPINEPHRINE
  5. RESTASIS [Concomitant]
     Active Substance: CYCLOSPORINE
  6. ACETAMINOPHEN. [Concomitant]
     Active Substance: ACETAMINOPHEN
  7. NORMAL SALINE [Concomitant]
     Active Substance: SODIUM CHLORIDE
  8. DIPHENHYDRAMINE. [Concomitant]
     Active Substance: DIPHENHYDRAMINE
  9. LIDOCAINE. [Concomitant]
     Active Substance: LIDOCAINE
  10. CARVEDILOL. [Concomitant]
     Active Substance: CARVEDILOL
  11. PROAIR BRONQUIAL [Concomitant]
  12. PROAIR HFA [Concomitant]
     Active Substance: ALBUTEROL SULFATE
  13. VITAMIN D3 [Concomitant]
     Active Substance: CHOLECALCIFEROL
  14. VITAMIN B [Concomitant]
     Active Substance: VITAMIN B
  15. ELIQUIS [Concomitant]
     Active Substance: APIXABAN
  16. MULTIVITAMIN + MINERAL [Concomitant]
     Active Substance: MINERALS\VITAMINS
  17. MULTIVITAMIN (16) [Concomitant]
     Active Substance: VITAMINS

REACTIONS (7)
  - Infusion site erythema [Unknown]
  - Nausea [Unknown]
  - Headache [Unknown]
  - Infusion site pruritus [Unknown]
  - Chills [Unknown]
  - Skin swelling [Unknown]
  - Infusion related reaction [Unknown]
